FAERS Safety Report 5244825-1 (Version None)
Quarter: 2007Q1

REPORT INFORMATION
  Report Type: 
  Country: None (occurrence: None)
  Receive Date: 20070216
  Receipt Date: 20070205
  Transmission Date: 20070707
  Serious: Yes (Hospitalization)
  Sender: FDA-Public Use
  Company Number: 233354

PATIENT
  Age: 54 Year
  Sex: Female
  Weight: 60 kg

DRUGS (7)
  1. MABTHERA(RITUXIMAB) CONC FOR SOLUTION FOR INFUSION [Suspect]
     Indication: RHEUMATOID ARTHRITIS
     Dosage: 1000 MG, INTRAVENOUS
     Dates: start: 20061002, end: 20061016
  2. PANTOPRAZOLE SODIUM [Concomitant]
  3. PREDNISONE [Concomitant]
  4. RHEUMATREX [Concomitant]
  5. HUMIRA [Concomitant]
  6. POLARAMINE (DEXCHLOPHENIRAMINE MALEATE) [Concomitant]
  7. CORTICOSTEROIDS (UNK INGREDIENTS) (CORTICOSTEROIDS NOS) [Concomitant]

REACTIONS (3)
  - ERYTHEMA [None]
  - HEADACHE [None]
  - HYPOACUSIS [None]
